FAERS Safety Report 24226985 (Version 7)
Quarter: 2025Q1

REPORT INFORMATION
  Report Type: Spontaneous
  Country: GB (occurrence: GB)
  Receive Date: 20240820
  Receipt Date: 20250205
  Transmission Date: 20250409
  Serious: No
  Sender: PFIZER
  Company Number: GB-PFIZER INC-202400230332

PATIENT
  Age: 16 Year
  Sex: Male

DRUGS (1)
  1. GENOTROPIN [Suspect]
     Active Substance: SOMATROPIN
     Indication: Growth hormone deficiency
     Route: 058

REACTIONS (6)
  - Device defective [Unknown]
  - Device mechanical issue [Unknown]
  - Wrong device used [Unknown]
  - Device breakage [Unknown]
  - Drug dose omission by device [Unknown]
  - Expired device used [Unknown]
